FAERS Safety Report 10952233 (Version 1)
Quarter: 2015Q1

REPORT INFORMATION
  Report Type: Spontaneous
  Country: US (occurrence: None)
  Receive Date: 20150324
  Receipt Date: 20150324
  Transmission Date: 20150721
  Serious: Yes (Hospitalization)
  Sender: FDA-Public Use
  Company Number: None

PATIENT
  Age: 45 Year
  Sex: Female

DRUGS (17)
  1. EFFEXOR XR [Concomitant]
     Active Substance: VENLAFAXINE HYDROCHLORIDE
  2. PRAVASTATIN SODIUM. [Concomitant]
     Active Substance: PRAVASTATIN SODIUM
  3. SOMA [Concomitant]
     Active Substance: CARISOPRODOL
  4. VESICARE [Concomitant]
     Active Substance: SOLIFENACIN SUCCINATE
  5. ADVAIR DISCUS [Concomitant]
  6. VIMPAT [Suspect]
     Active Substance: LACOSAMIDE
     Indication: SEIZURE
     Dosage: 50 MG IN AM/ 100 MG PM
     Route: 048
     Dates: start: 20121201
  7. DEPAKOTE [Concomitant]
     Active Substance: DIVALPROEX SODIUM
  8. BIAXIN [Concomitant]
     Active Substance: CLARITHROMYCIN
  9. PROAIR INHALER [Concomitant]
  10. NYSTATIN. [Concomitant]
     Active Substance: NYSTATIN
  11. CEFTIN [Concomitant]
     Active Substance: CEFUROXIME AXETIL
  12. ALEVE [Concomitant]
     Active Substance: NAPROXEN SODIUM
  13. ATIVAN [Concomitant]
     Active Substance: LORAZEPAM
  14. TOPOCON [Concomitant]
  15. MULTIVITAMIN [Concomitant]
     Active Substance: VITAMINS
  16. FAMCYCLOVIR [Concomitant]
     Active Substance: FAMCICLOVIR
  17. BIOTIN [Concomitant]
     Active Substance: BIOTIN

REACTIONS (1)
  - Suicidal ideation [None]

NARRATIVE: CASE EVENT DATE: 20141201
